FAERS Safety Report 11193116 (Version 1)
Quarter: 2015Q2

REPORT INFORMATION
  Report Type: Spontaneous
  Country: US (occurrence: US)
  Receive Date: 20150616
  Receipt Date: 20150616
  Transmission Date: 20150821
  Serious: No
  Sender: FDA-Public Use
  Company Number: US-TAKEDA-2014MPI002245

PATIENT
  Age: 60 Year
  Sex: Female
  Weight: 124.72 kg

DRUGS (21)
  1. VITAMIN D2 [Concomitant]
     Active Substance: ERGOCALCIFEROL
     Dosage: 50000  UNITS, UNK
  2. DILTIAZEM [Concomitant]
     Active Substance: DILTIAZEM
     Dosage: 180 MG, UNK
  3. ASPIRIN. [Concomitant]
     Active Substance: ASPIRIN
     Dosage: 325 MG, UNK
  4. CINNAMON                           /01647501/ [Concomitant]
     Active Substance: CINNAMON
  5. VELCADE [Suspect]
     Active Substance: BORTEZOMIB
     Indication: PLASMA CELL MYELOMA
     Dosage: UNK
     Route: 058
     Dates: start: 201401, end: 201407
  6. VENLAFAXINE [Concomitant]
     Active Substance: VENLAFAXINE HYDROCHLORIDE
     Dosage: 225 MG, UNK
  7. PREVACID [Concomitant]
     Active Substance: LANSOPRAZOLE
  8. GLUCOSAMINE [Concomitant]
     Active Substance: GLUCOSAMINE
  9. FENOFIBRATE. [Concomitant]
     Active Substance: FENOFIBRATE
     Dosage: 200 MG, UNK
  10. MULTIVITAMIN                       /00831701/ [Concomitant]
     Active Substance: VITAMINS
  11. CRANBERRY                          /01512301/ [Concomitant]
  12. COLESTIPOL [Concomitant]
     Active Substance: COLESTIPOL
     Dosage: 1 G, UNK
  13. METOPROLOL [Concomitant]
     Active Substance: METOPROLOL
     Dosage: 100 MG, UNK
  14. TURMERIC + CURCUMIN [Concomitant]
  15. VALACYCLOVIR HYDROCHLORIDE. [Concomitant]
     Active Substance: VALACYCLOVIR HYDROCHLORIDE
     Dosage: 500 MG, UNK
  16. PRAVASTATIN [Concomitant]
     Active Substance: PRAVASTATIN\PRAVASTATIN SODIUM
     Dosage: 20 MG, UNK
  17. ZOMETA [Concomitant]
     Active Substance: ZOLEDRONIC ACID
  18. DEXAMETHASONE. [Suspect]
     Active Substance: DEXAMETHASONE
     Indication: PRODUCT USED FOR UNKNOWN INDICATION
     Dosage: UNK
     Route: 048
     Dates: start: 201401, end: 201407
  19. FUROSEMIDE. [Concomitant]
     Active Substance: FUROSEMIDE
     Indication: ABDOMINAL DISTENSION
     Dosage: 20 MG, AS NEEDED
  20. FOLIC ACID. [Concomitant]
     Active Substance: FOLIC ACID
  21. DONNATAL [Concomitant]
     Active Substance: ATROPINE SULFATE\HYOSCYAMINE SULFATE\PHENOBARBITAL\SCOPOLAMINE HYDROBROMIDE

REACTIONS (3)
  - Weight increased [Recovering/Resolving]
  - Neuropathy peripheral [Recovering/Resolving]
  - Retinal toxicity [Recovering/Resolving]

NARRATIVE: CASE EVENT DATE: 2014
